FAERS Safety Report 11350209 (Version 1)
Quarter: 2015Q3

REPORT INFORMATION
  Report Type: Spontaneous
  Country: US (occurrence: None)
  Receive Date: 20150806
  Receipt Date: 20150806
  Transmission Date: 20151125
  Serious: Yes (Hospitalization)
  Sender: FDA-Public Use
  Company Number: None

PATIENT
  Age: 56 Year
  Sex: Female
  Weight: 48.99 kg

DRUGS (5)
  1. PEG 3350 [Suspect]
     Active Substance: POLYETHYLENE GLYCOL 3350
     Indication: COLONOSCOPY
     Dosage: 1/2 BOTTLE NIGHT PM AND AM AS DIRECTED TAKEN BY MOUTH
     Route: 048
     Dates: start: 20150730, end: 20150731
  2. PROBIOTICS [Concomitant]
     Active Substance: PROBIOTICS NOS
  3. ARMOUR THYROID [Concomitant]
     Active Substance: THYROID, PORCINE\THYROID, UNSPECIFIED
  4. VITAMINS [Concomitant]
     Active Substance: VITAMINS
  5. ESTRADIOL. [Concomitant]
     Active Substance: ESTRADIOL

REACTIONS (12)
  - Weight decreased [None]
  - Headache [None]
  - Hypertension [None]
  - Vomiting [None]
  - Asthenia [None]
  - Feeling abnormal [None]
  - Nausea [None]
  - Dizziness [None]
  - Dyspnoea [None]
  - Dehydration [None]
  - Suffocation feeling [None]
  - Neck pain [None]

NARRATIVE: CASE EVENT DATE: 20150731
